FAERS Safety Report 10266340 (Version 1)
Quarter: 2014Q2

REPORT INFORMATION
  Report Type: Spontaneous
  Country: GB (occurrence: GB)
  Receive Date: 20140627
  Receipt Date: 20140627
  Transmission Date: 20141212
  Serious: Yes (Other)
  Sender: FDA-Public Use
  Company Number: GB-TAKEDA-2014TJP008359

PATIENT
  Age: 79 Year
  Sex: Female

DRUGS (6)
  1. LANSOPRAZOLE [Suspect]
     Indication: POSTOPERATIVE CARE
     Dosage: 15 MG, QD
     Route: 048
     Dates: start: 2011
  2. LANSOPRAZOLE [Suspect]
     Dosage: 15 MG, QD
     Route: 048
     Dates: start: 2007
  3. AMLODIPINE [Concomitant]
     Dosage: UNK
  4. ACETYLSALICYLIC ACID [Concomitant]
     Dosage: UNK
  5. BISOPROLOL [Concomitant]
     Dosage: UNK
  6. CLOPIDOGREL [Concomitant]
     Dosage: UNK

REACTIONS (2)
  - Gastric haemorrhage [Recovered/Resolved]
  - Melaena [Recovered/Resolved]
